FAERS Safety Report 7716371-4 (Version None)
Quarter: 2011Q3

REPORT INFORMATION
  Report Type: 
  Country: None (occurrence: None)
  Receive Date: 20110829
  Receipt Date: 20110819
  Transmission Date: 20111222
  Serious: Yes (Other)
  Sender: FDA-Public Use
  Company Number: PHHY2011TR75057

PATIENT
  Age: 10 Year
  Sex: Female

DRUGS (1)
  1. FLUOXETINE [Suspect]
     Indication: OBSESSIVE-COMPULSIVE DISORDER
     Dosage: 10 MG, UNK

REACTIONS (4)
  - TIC [None]
  - DYSPHONIA [None]
  - EYE MOVEMENT DISORDER [None]
  - DYSKINESIA [None]
